FAERS Safety Report 17167117 (Version 1)
Quarter: 2019Q4

REPORT INFORMATION
  Report Type: Spontaneous
  Country: US (occurrence: US)
  Receive Date: 20191218
  Receipt Date: 20191218
  Transmission Date: 20200122
  Serious: Yes (Life-Threatening, Other)
  Sender: FDA-Public Use
  Company Number: US-AUROBINDO-AUR-APL-2019-104220

PATIENT
  Age: 56 Year
  Sex: Male

DRUGS (3)
  1. BORTEZOMIB. [Interacting]
     Active Substance: BORTEZOMIB
     Indication: PLASMA CELL MYELOMA
     Dosage: 1.5 MILLIGRAM/SQ. METER, CYCLICAL
     Route: 065
  2. CYCLOPHOSPHAMIDE. [Interacting]
     Active Substance: CYCLOPHOSPHAMIDE
     Indication: PLASMA CELL MYELOMA
     Dosage: 300 MILLIGRAM/SQ. METER, CYCLICAL
     Route: 065
  3. DEXAMETHASONE. [Suspect]
     Active Substance: DEXAMETHASONE
     Indication: PLASMA CELL MYELOMA
     Dosage: 40 MILLIGRAM, CYCLICAL
     Route: 065

REACTIONS (4)
  - Hepatic encephalopathy [Unknown]
  - Toxicity to various agents [Unknown]
  - Drug interaction [Unknown]
  - Venoocclusive liver disease [Unknown]
